FAERS Safety Report 25829020 (Version 1)
Quarter: 2025Q3

REPORT INFORMATION
  Report Type: Spontaneous
  Country: US (occurrence: US)
  Receive Date: 20250922
  Receipt Date: 20250922
  Transmission Date: 20251021
  Serious: No
  Sender: AMGEN
  Company Number: US-AMGEN-USASP2025188709

PATIENT
  Age: 69 Year
  Sex: Female

DRUGS (13)
  1. OTEZLA [Suspect]
     Active Substance: APREMILAST
     Indication: Psoriasis
     Dosage: 30 MILLIGRAM, BID
     Route: 048
     Dates: start: 20220303
  2. ALBUTEROL SULFATE [Concomitant]
     Active Substance: ALBUTEROL SULFATE
  3. ASPIRIN [Concomitant]
     Active Substance: ASPIRIN
  4. BACLOFEN [Concomitant]
     Active Substance: BACLOFEN
  5. BETAMETHASONE [Concomitant]
     Active Substance: BETAMETHASONE
  6. CITALOPRAM [Concomitant]
     Active Substance: CITALOPRAM
  7. OMEGA 3 [Concomitant]
     Active Substance: CAPSAICIN
  8. LEVOTHYROXINE [Concomitant]
     Active Substance: LEVOTHYROXINE
  9. NYSTATIN [Concomitant]
     Active Substance: NYSTATIN
  10. CLONAZEPAM [Concomitant]
     Active Substance: CLONAZEPAM
  11. KETOCONAZOLE [Concomitant]
     Active Substance: KETOCONAZOLE
  12. DICLOFENAC [Concomitant]
     Active Substance: DICLOFENAC
  13. VITAMIN D [Concomitant]
     Active Substance: VITAMIN D NOS

REACTIONS (1)
  - Psoriasis [Not Recovered/Not Resolved]
